FAERS Safety Report 19207737 (Version 1)
Quarter: 2021Q2

REPORT INFORMATION
  Report Type: Spontaneous
  Country: US (occurrence: US)
  Receive Date: 20210503
  Receipt Date: 20210503
  Transmission Date: 20210717
  Serious: Yes (Other)
  Sender: FDA-Public Use
  Company Number: US-UCBSA-2021020371

PATIENT
  Age: 29 Year
  Sex: Female

DRUGS (1)
  1. CIMZIA [Suspect]
     Active Substance: CERTOLIZUMAB PEGOL
     Indication: PSORIASIS
     Dosage: 400 MILLIGRAM, UNK
     Dates: start: 20210414

REACTIONS (5)
  - Paraesthesia oral [Unknown]
  - Vomiting [Unknown]
  - Nausea [Unknown]
  - Heart rate [Unknown]
  - Throat tightness [Unknown]

NARRATIVE: CASE EVENT DATE: 20210414
